FAERS Safety Report 19717871 (Version 2)
Quarter: 2021Q3

REPORT INFORMATION
  Report Type: Report from Study
  Country: LB (occurrence: LB)
  Receive Date: 20210818
  Receipt Date: 20210831
  Transmission Date: 20211014
  Serious: Yes (Hospitalization)
  Sender: FDA-Public Use
  Company Number: LB-NOVOPROD-838396

PATIENT
  Sex: Male
  Weight: 86 kg

DRUGS (2)
  1. TELMICARD PLUS [Concomitant]
     Indication: HYPERTENSION
     Dosage: UNK
     Route: 065
  2. NOVOEIGHT [Suspect]
     Active Substance: ANTIHEMOPHILIC FACTOR, HUMAN RECOMBINANT
     Indication: FACTOR VIII DEFICIENCY
     Dosage: DOSAGE OF 55 VIALS EVERY MONTH
     Route: 065
     Dates: start: 202107

REACTIONS (1)
  - Haemophilic arthropathy [Not Recovered/Not Resolved]

NARRATIVE: CASE EVENT DATE: 202107
